FAERS Safety Report 6504371-1 (Version None)
Quarter: 2009Q4

REPORT INFORMATION
  Report Type: 
  Country: None (occurrence: None)
  Receive Date: 20091217
  Receipt Date: 20091209
  Transmission Date: 20100525
  Serious: Yes (Death)
  Sender: FDA-Public Use
  Company Number: FR-WYE-H12650509

PATIENT
  Age: 70 Year
  Sex: Female

DRUGS (7)
  1. CORDARONE [Suspect]
     Route: 048
  2. POTASSIUM CHLORIDE [Concomitant]
     Dosage: NOT PROVIDED
     Dates: start: 20091001
  3. VENTOLIN [Suspect]
     Indication: ASTHMA
     Dosage: NOT PROVIDED
     Route: 055
  4. LASILIX [Suspect]
     Indication: CARDIAC FAILURE
     Dosage: NOT PROVIDED
     Route: 048
     Dates: end: 20091001
  5. RISPERDAL [Suspect]
  6. ENOXAPARIN SODIUM [Concomitant]
     Indication: PROPHYLAXIS
     Dosage: NOT PROVIDED
     Dates: start: 20091001
  7. DEPAMIDE [Suspect]
     Route: 048

REACTIONS (1)
  - SUDDEN DEATH [None]
